FAERS Safety Report 9879258 (Version 1)
Quarter: 2014Q1

REPORT INFORMATION
  Report Type: Spontaneous
  Country: US (occurrence: US)
  Receive Date: 20140206
  Receipt Date: 20140206
  Transmission Date: 20141002
  Serious: No
  Sender: FDA-Public Use
  Company Number: US-ALLERGAN-1313811US

PATIENT
  Age: 55 Year
  Sex: Female

DRUGS (4)
  1. BOTOX [Suspect]
     Indication: SKIN WRINKLING
     Dosage: UNK, SINGLE
     Route: 030
     Dates: start: 20130907, end: 20130907
  2. BOTOX [Suspect]
     Indication: SKIN WRINKLING
  3. JUVEDERM ULTRA XC [Suspect]
     Indication: DERMAL FILLER INJECTION
     Dosage: UNK
     Dates: start: 20130907, end: 20130907
  4. JUVEDERM ULTRA XC [Suspect]
     Indication: DERMAL FILLER INJECTION

REACTIONS (2)
  - Swelling face [Unknown]
  - Contusion [Unknown]
